FAERS Safety Report 8460881-1 (Version None)
Quarter: 2012Q2

REPORT INFORMATION
  Report Type: 
  Country: None (occurrence: None)
  Receive Date: 20120625
  Receipt Date: 20120619
  Transmission Date: 20120825
  Serious: Yes (Hospitalization)
  Sender: FDA-Public Use
  Company Number: US-AMGEN-USASP2012038087

PATIENT
  Age: 60 Year
  Sex: Female

DRUGS (2)
  1. ENBREL [Suspect]
     Indication: RHEUMATOID ARTHRITIS
     Dosage: 50 MG, QWK
     Dates: start: 20110609
  2. METHOTREXATE [Concomitant]
     Dosage: UNK

REACTIONS (6)
  - ASTHENIA [None]
  - WEIGHT INCREASED [None]
  - LUMBAR VERTEBRAL FRACTURE [None]
  - ARTHRALGIA [None]
  - GASTRIC DILATATION [None]
  - JOINT SWELLING [None]
